FAERS Safety Report 23134441 (Version 2)
Quarter: 2023Q4

REPORT INFORMATION
  Report Type: Spontaneous
  Country: US (occurrence: US)
  Receive Date: 20231101
  Receipt Date: 20231113
  Transmission Date: 20240110
  Serious: Yes (Other)
  Sender: FDA-Public Use
  Company Number: US-TEVA-2023-US-2940259

PATIENT
  Age: 29 Year
  Sex: Male

DRUGS (2)
  1. PREDNISONE [Suspect]
     Active Substance: PREDNISONE
     Indication: Langerhans^ cell histiocytosis
     Dosage: 60 MILLIGRAM DAILY;
     Route: 065
  2. BACTRIM [Concomitant]
     Active Substance: SULFAMETHOXAZOLE\TRIMETHOPRIM
     Indication: Langerhans^ cell histiocytosis
     Route: 065

REACTIONS (2)
  - Disseminated coccidioidomycosis [Recovering/Resolving]
  - Coccidioidomycosis [Recovering/Resolving]
